FAERS Safety Report 17175713 (Version 1)
Quarter: 2019Q4

REPORT INFORMATION
  Report Type: Spontaneous
  Country: AU (occurrence: AU)
  Receive Date: 20191219
  Receipt Date: 20191219
  Transmission Date: 20200122
  Serious: Yes (Other)
  Sender: FDA-Public Use
  Company Number: AU-TEVA-2019-AU-1154851

PATIENT

DRUGS (1)
  1. IMATINIB. [Suspect]
     Active Substance: IMATINIB MESYLATE
     Indication: CHRONIC MYELOID LEUKAEMIA
     Dosage: DOSAGE UNKNOWN
     Route: 048
     Dates: start: 20160112, end: 201705

REACTIONS (2)
  - Gelatinous transformation of the bone marrow [Recovering/Resolving]
  - Therapy non-responder [Unknown]
